FAERS Safety Report 23404046 (Version 1)
Quarter: 2024Q1

REPORT INFORMATION
  Report Type: Spontaneous
  Country: US (occurrence: US)
  Receive Date: 20240116
  Receipt Date: 20240116
  Transmission Date: 20240409
  Serious: Yes (Other)
  Sender: FDA-Public Use
  Company Number: US-GILEAD-2024-0658072

PATIENT
  Age: 74 Year
  Sex: Male

DRUGS (7)
  1. BIKTARVY [Suspect]
     Active Substance: BICTEGRAVIR SODIUM\EMTRICITABINE\TENOFOVIR ALAFENAMIDE FUMARATE
     Indication: HIV infection
     Dosage: UNK (STARTED 5 YEARS AGO)
     Route: 065
  2. ATORVASTATIN [Concomitant]
     Active Substance: ATORVASTATIN
     Indication: Blood cholesterol increased
  3. VALSARTAN [Concomitant]
     Active Substance: VALSARTAN
     Indication: Hypertension
  4. VITAMIN B3 [Concomitant]
     Active Substance: NIACIN
  5. VITAMIN B12 [Concomitant]
     Active Substance: CYANOCOBALAMIN
  6. COENZYME Q10 [TOCOPHERYL ACETATE;UBIDECARENONE] [Concomitant]
  7. OCUVITE [Concomitant]
     Active Substance: VITAMINS

REACTIONS (6)
  - Renal cancer [Recovered/Resolved]
  - Glaucoma [Recovered/Resolved]
  - Cataract [Recovered/Resolved]
  - Prostate cancer [Unknown]
  - Renal cyst [Unknown]
  - Dry eye [Unknown]
